FAERS Safety Report 17680345 (Version 1)
Quarter: 2020Q2

REPORT INFORMATION
  Report Type: Spontaneous
  Country: BR (occurrence: BR)
  Receive Date: 20200417
  Receipt Date: 20200417
  Transmission Date: 20200714
  Serious: Yes (Hospitalization)
  Sender: FDA-Public Use
  Company Number: BR-SHIRE-BR202013499

PATIENT

DRUGS (1)
  1. MESACOL MMX [Suspect]
     Active Substance: MESALAMINE
     Indication: COLITIS ULCERATIVE
     Dosage: 3200 MILLIGRAM, 1X/DAY:QD
     Route: 048
     Dates: start: 20200130

REACTIONS (5)
  - Anaemia [Recovered/Resolved]
  - Faeces hard [Unknown]
  - Retching [Unknown]
  - Tachycardia [Unknown]
  - Product residue present [Recovered/Resolved]

NARRATIVE: CASE EVENT DATE: 202002
